FAERS Safety Report 15736850 (Version 1)
Quarter: 2018Q4

REPORT INFORMATION
  Report Type: Spontaneous
  Country: FR (occurrence: FR)
  Receive Date: 20181218
  Receipt Date: 20181218
  Transmission Date: 20190205
  Serious: Yes (Hospitalization)
  Sender: FDA-Public Use
  Company Number: FR-PFIZER INC-2018513342

PATIENT
  Age: 32 Year
  Sex: Female

DRUGS (3)
  1. CANNABIS [Suspect]
     Active Substance: CANNABIS SATIVA SUBSP. INDICA TOP
     Indication: DRUG ABUSE
     Dosage: 5-6 JOINTS/DAY
     Route: 055
  2. TOBACCO [Suspect]
     Active Substance: TOBACCO LEAF
     Indication: EX-TOBACCO USER
     Dosage: 15 CIG/DAY
     Route: 055
  3. TRINORDIOL [Suspect]
     Active Substance: ETHINYL ESTRADIOL\LEVONORGESTREL
     Dosage: UNK
     Route: 065

REACTIONS (1)
  - Cerebrovascular accident [Recovered/Resolved]

NARRATIVE: CASE EVENT DATE: 20170827
